APPROVED DRUG PRODUCT: CHLORPROMAZINE HYDROCHLORIDE
Active Ingredient: CHLORPROMAZINE HYDROCHLORIDE
Strength: 50MG
Dosage Form/Route: TABLET;ORAL
Application: A213590 | Product #003 | TE Code: AB
Applicant: SOMERSET THERAPEUTICS LLC
Approved: Aug 31, 2020 | RLD: No | RS: No | Type: RX